FAERS Safety Report 13903713 (Version 3)
Quarter: 2017Q4

REPORT INFORMATION
  Report Type: Report from Study
  Country: US (occurrence: US)
  Receive Date: 20170824
  Receipt Date: 20171206
  Transmission Date: 20180320
  Serious: Yes (Hospitalization)
  Sender: FDA-Public Use
  Company Number: US-ACTELION-A-NJ2017-158485

PATIENT
  Age: 80 Year
  Sex: Female
  Weight: 234.92 kg

DRUGS (1)
  1. OPSUMIT [Suspect]
     Active Substance: MACITENTAN
     Indication: PULMONARY ARTERIAL HYPERTENSION
     Dosage: 10 MG, QD
     Route: 048

REACTIONS (4)
  - Nausea [Unknown]
  - Cholecystectomy [Unknown]
  - Malaise [Unknown]
  - Diarrhoea [Unknown]
